FAERS Safety Report 10638569 (Version 1)
Quarter: 2014Q4

REPORT INFORMATION
  Report Type: Spontaneous
  Country: US (occurrence: None)
  Receive Date: 20141121
  Receipt Date: 20141121
  Transmission Date: 20150529
  Serious: No
  Sender: FDA-Public Use
  Company Number: 163-10004-14084760

PATIENT
  Age: 59 Year
  Sex: Female

DRUGS (3)
  1. OTEZLA [Suspect]
     Active Substance: APREMILAST
     Indication: BEHCET^S SYNDROME
     Dosage: TITRATION, 2 IN 1 D, PO
     Route: 048
     Dates: start: 20140820
  2. PREDNISONE (PREDNISONE) [Suspect]
     Active Substance: PREDNISONE
  3. SULFAST (SULFUR) [Concomitant]

REACTIONS (7)
  - Tremor [None]
  - Abdominal pain upper [None]
  - Diarrhoea [None]
  - Cold sweat [None]
  - Nausea [None]
  - Hot flush [None]
  - Headache [None]

NARRATIVE: CASE EVENT DATE: 20140820
